FAERS Safety Report 5270499-X (Version None)
Quarter: 2007Q1

REPORT INFORMATION
  Report Type: 
  Country: None (occurrence: None)
  Receive Date: 20070315
  Receipt Date: 20070302
  Transmission Date: 20070707
  Serious: Yes (Other)
  Sender: FDA-Public Use
  Company Number: 2006US-04956

PATIENT
  Age: 22 Year
  Sex: Female
  Weight: 125 kg

DRUGS (2)
  1. ISOTRETINOIN [Suspect]
     Dosage: SEE IMAGE
     Route: 048
     Dates: start: 20061005, end: 20061213
  2. ISOTRETINOIN [Suspect]
     Dosage: SEE IMAGE
     Route: 048
     Dates: start: 20061005, end: 20061213

REACTIONS (3)
  - ABORTION SPONTANEOUS [None]
  - DRUG EXPOSURE DURING PREGNANCY [None]
  - PREGNANCY [None]
